FAERS Safety Report 12958848 (Version 1)
Quarter: 2016Q4

REPORT INFORMATION
  Report Type: Spontaneous
  Country: US (occurrence: US)
  Receive Date: 20161117
  Receipt Date: 20161117
  Transmission Date: 20170207
  Serious: No
  Sender: FDA-Public Use
  Company Number: None

PATIENT
  Age: 59 Year
  Sex: Female

DRUGS (7)
  1. GABAPENTIN. [Concomitant]
     Active Substance: GABAPENTIN
  2. AMITRIPTYLINE [Suspect]
     Active Substance: AMITRIPTYLINE
     Indication: PAIN
     Route: 048
     Dates: start: 20161012
  3. OLANZAPINE. [Concomitant]
     Active Substance: OLANZAPINE
  4. TRAZODONE [Concomitant]
     Active Substance: TRAZODONE HYDROCHLORIDE
  5. DIAZEPAM. [Concomitant]
     Active Substance: DIAZEPAM
  6. DULOXETINE. [Concomitant]
     Active Substance: DULOXETINE
  7. ZOLPIDEM [Concomitant]
     Active Substance: ZOLPIDEM\ZOLPIDEM TARTRATE

REACTIONS (5)
  - Insomnia [None]
  - Vomiting [None]
  - Abdominal discomfort [None]
  - Feeling of despair [None]
  - Suicidal ideation [None]

NARRATIVE: CASE EVENT DATE: 20161012
